FAERS Safety Report 21962404 (Version 4)
Quarter: 2025Q4

REPORT INFORMATION
  Report Type: Report from Study
  Country: US (occurrence: US)
  Receive Date: 20230207
  Receipt Date: 20251128
  Transmission Date: 20260118
  Serious: No
  Sender: ESTEVE
  Company Number: US-ORG100014127-2022001343

PATIENT
  Age: 69 Year
  Sex: Male

DRUGS (8)
  1. LYSODREN [Suspect]
     Active Substance: MITOTANE
     Indication: Adrenal gland cancer
     Dates: start: 20220623
  2. LYSODREN [Suspect]
     Active Substance: MITOTANE
  3. HYDROCORTISONE [Suspect]
     Active Substance: HYDROCORTISONE
  4. LYSODREN [Suspect]
     Active Substance: MITOTANE
  5. LYSODREN [Suspect]
     Active Substance: MITOTANE
  6. LYSODREN [Suspect]
     Active Substance: MITOTANE
     Dates: end: 202403
  7. LYSODREN [Suspect]
     Active Substance: MITOTANE
     Dates: end: 2023
  8. LYSODREN [Suspect]
     Active Substance: MITOTANE

REACTIONS (5)
  - Arthralgia [Unknown]
  - Product dose omission issue [Unknown]
  - Drug ineffective [Unknown]
  - Fatigue [Not Recovered/Not Resolved]
  - Pain in extremity [Unknown]

NARRATIVE: CASE EVENT DATE: 20221001
